FAERS Safety Report 11867157 (Version 2)
Quarter: 2016Q1

REPORT INFORMATION
  Report Type: Spontaneous
  Country: GB (occurrence: GB)
  Receive Date: 20151224
  Receipt Date: 20160121
  Transmission Date: 20160526
  Serious: Yes (Disabling, Other)
  Sender: FDA-Public Use
  Company Number: GB-JNJFOC-20151218725

PATIENT
  Age: 24 Year
  Sex: Male

DRUGS (1)
  1. XEPLION [Suspect]
     Active Substance: PALIPERIDONE PALMITATE
     Indication: MENTAL DISORDER
     Dosage: 150 MG, 100 MG, 75 MG, 50 MG, 50 MG
     Route: 030
     Dates: start: 20150828

REACTIONS (7)
  - Off label use [Unknown]
  - Suicidal ideation [Not Recovered/Not Resolved]
  - Restlessness [Not Recovered/Not Resolved]
  - Feeling of despair [Not Recovered/Not Resolved]
  - Product use issue [Unknown]
  - Depression [Not Recovered/Not Resolved]
  - Abnormal behaviour [Not Recovered/Not Resolved]

NARRATIVE: CASE EVENT DATE: 20150828
